FAERS Safety Report 6956103-0 (Version None)
Quarter: 2010Q3

REPORT INFORMATION
  Report Type: 
  Country: None (occurrence: None)
  Receive Date: 20100830
  Receipt Date: 20100610
  Transmission Date: 20110219
  Serious: No
  Sender: FDA-Public Use
  Company Number: US-BAUSCH-2010BL003153

PATIENT
  Age: 54 Year
  Sex: Female

DRUGS (8)
  1. TROPICAMIDE [Suspect]
     Indication: MYDRIASIS
     Route: 047
     Dates: start: 20100607, end: 20100607
  2. ZYRTEC [Concomitant]
     Indication: HYPERSENSITIVITY
     Route: 048
  3. GLUCOPHAGE [Concomitant]
     Indication: PRODUCT USED FOR UNKNOWN INDICATION
     Route: 048
  4. FISH OIL [Concomitant]
     Indication: MEDICAL DIET
     Route: 048
  5. OXYBUTYNIN [Concomitant]
     Indication: PRODUCT USED FOR UNKNOWN INDICATION
     Route: 048
  6. LISINOPRIL AND HYDROCHLOROTHIAZIDE [Concomitant]
     Indication: HYPERTENSION
     Route: 048
  7. DARVOCET-N 100 [Concomitant]
     Indication: PAIN
     Route: 048
  8. TYLENOL ^JOHNSON + JOHNSON^ [Concomitant]
     Indication: PAIN
     Route: 048

REACTIONS (6)
  - DIZZINESS [None]
  - EYELID OEDEMA [None]
  - FEELING HOT [None]
  - INSTILLATION SITE PAIN [None]
  - NAUSEA [None]
  - PHOTOPHOBIA [None]
